FAERS Safety Report 9290207 (Version 1)
Quarter: 2013Q2

REPORT INFORMATION
  Report Type: Spontaneous
  Country: US (occurrence: US)
  Receive Date: 20130515
  Receipt Date: 20130515
  Transmission Date: 20140414
  Serious: No
  Sender: FDA-Public Use
  Company Number: US-OPTIMER PHARMACEUTICALS, INC.-20120047

PATIENT
  Age: 90 Year
  Sex: Female
  Weight: 40.82 kg

DRUGS (4)
  1. DIFICID [Suspect]
     Indication: CLOSTRIDIAL INFECTION
     Dosage: UNK
     Route: 048
     Dates: start: 201201, end: 201201
  2. LISINOPRIL [Concomitant]
     Indication: HEART VALVE REPLACEMENT
     Dosage: UNK
     Route: 048
  3. ISOSORBIDE [Concomitant]
     Indication: HEART VALVE REPLACEMENT
     Dosage: UNK
     Route: 048
  4. AMIODARONE [Concomitant]
     Dosage: UNK
     Route: 048

REACTIONS (1)
  - Diarrhoea [Not Recovered/Not Resolved]
